FAERS Safety Report 13077478 (Version 1)
Quarter: 2016Q4

REPORT INFORMATION
  Report Type: Spontaneous
  Country: US (occurrence: US)
  Receive Date: 20161231
  Receipt Date: 20161231
  Transmission Date: 20170207
  Serious: Yes (Death, Hospitalization)
  Sender: FDA-Public Use
  Company Number: US-ASTRAZENECA-2016SF37544

PATIENT
  Age: 44 Year
  Sex: Female

DRUGS (6)
  1. METFORMIN [Suspect]
     Active Substance: METFORMIN HYDROCHLORIDE
  2. CLINDAMYCIN. [Suspect]
     Active Substance: CLINDAMYCIN
  3. COCAINE [Suspect]
     Active Substance: COCAINE
  4. PAROXETINE. [Suspect]
     Active Substance: PAROXETINE
  5. QUETIAPINE. [Suspect]
     Active Substance: QUETIAPINE
  6. ALCOHOL. [Suspect]
     Active Substance: ALCOHOL

REACTIONS (2)
  - Toxicity to various agents [Fatal]
  - Completed suicide [Fatal]
